FAERS Safety Report 8554106-6 (Version None)
Quarter: 2012Q3

REPORT INFORMATION
  Report Type: 
  Country: None (occurrence: None)
  Receive Date: 20120731
  Receipt Date: 20120726
  Transmission Date: 20120928
  Serious: Yes (Other)
  Sender: FDA-Public Use
  Company Number: PHEH2012US014772

PATIENT
  Sex: Male

DRUGS (2)
  1. METFORMIN HYDROCHLORIDE [Concomitant]
     Dosage: UNK UKN, UNK
  2. EXFORGE HCT [Suspect]
     Dosage: 1 DF (320/10/25 MG), QD

REACTIONS (2)
  - BLOOD PRESSURE DECREASED [None]
  - ANKLE FRACTURE [None]
